FAERS Safety Report 7117717 (Version 4)
Quarter: 2013Q4

REPORT INFORMATION
  Report Type: Report from Study
  Country: JP (occurrence: JP)
  Receive Date: 20090917
  Receipt Date: 20131114
  Transmission Date: 20140711
  Serious: Yes (Hospitalization, Other)
  Sender: FDA-Public Use
  Company Number: JP-PFIZER INC-2009266527

PATIENT
  Age: 61 Year
  Sex: Female
  Weight: 56 kg

DRUGS (8)
  1. SUNITINIB MALATE [Suspect]
     Indication: RENAL CELL CARCINOMA
     Dosage: 37.5 MG, 1X/DAY
     Route: 048
     Dates: start: 20090806, end: 20090820
  2. CALONAL [Concomitant]
     Dosage: UNK
     Route: 048
     Dates: start: 20090126
  3. AMLODIN [Concomitant]
     Dosage: UNK
     Route: 048
     Dates: start: 2008
  4. MOBIC [Concomitant]
     Dosage: UNK
     Route: 048
     Dates: start: 2008
  5. GASLON [Concomitant]
     Dosage: UNK
     Route: 048
     Dates: start: 2008
  6. PURSENNID [Concomitant]
     Dosage: UNK
     Route: 048
     Dates: start: 2008
  7. TOFRANIL [Concomitant]
     Dosage: UNK
     Route: 048
     Dates: start: 2008
  8. MICARDIS [Concomitant]
     Dosage: UNK
     Route: 048
     Dates: start: 2008

REACTIONS (2)
  - Cholecystitis acute [Recovering/Resolving]
  - Platelet count decreased [Recovering/Resolving]
